FAERS Safety Report 13134646 (Version 3)
Quarter: 2017Q1

REPORT INFORMATION
  Report Type: Spontaneous
  Country: JP (occurrence: JP)
  Receive Date: 20170120
  Receipt Date: 20170215
  Transmission Date: 20170428
  Serious: Yes (Other)
  Sender: FDA-Public Use
  Company Number: JP-BAYER-2017-008375

PATIENT
  Age: 34 Year
  Sex: Female

DRUGS (1)
  1. BAYASPIRIN 100 MG [Suspect]
     Active Substance: ASPIRIN
     Indication: COAGULOPATHY
     Dosage: UNK
     Route: 048

REACTIONS (7)
  - HLA marker study positive [None]
  - Premature delivery [None]
  - Maternal exposure during pregnancy [Recovered/Resolved]
  - Placental infarction [None]
  - Foetal growth restriction [None]
  - Nonreassuring foetal heart rate pattern [None]
  - Off label use [None]
